FAERS Safety Report 23229649 (Version 1)
Quarter: 2023Q4

REPORT INFORMATION
  Report Type: Spontaneous
  Country: US (occurrence: None)
  Receive Date: 20231127
  Receipt Date: 20231127
  Transmission Date: 20240110
  Serious: No
  Sender: FDA-Public Use
  Company Number: US-ROCHE-3331943

PATIENT
  Age: 63 Year
  Sex: Female

DRUGS (20)
  1. PULMOZYME [Suspect]
     Active Substance: DORNASE ALFA
     Indication: Cystic fibrosis
     Dosage: INHALE 1 AMPULE 2.5ML VIA NEBULIZER ONCE DAILY?SOL 1MG ML
     Route: 055
  2. ASPIRIN [Concomitant]
     Active Substance: ASPIRIN
  3. BUDESONIDE [Concomitant]
     Active Substance: BUDESONIDE
     Dosage: SUS 0.25 MG/2ML
  4. EPINEPHRINE [Concomitant]
     Active Substance: EPINEPHRINE
     Dosage: SOA 0.15MG/0
  5. FLONASE [Concomitant]
     Active Substance: FLUTICASONE PROPIONATE
     Dosage: SUS 50 MCG/ACT
  6. LORATADINE [Concomitant]
     Active Substance: LORATADINE
  7. LOSARTAN POTASSIUM [Concomitant]
     Active Substance: LOSARTAN POTASSIUM
  8. SODIUM CHLORIDE [Concomitant]
     Active Substance: SODIUM CHLORIDE
     Dosage: NEB 7%
  9. AMLODIPINE BESYLATE [Concomitant]
     Active Substance: AMLODIPINE BESYLATE
     Dosage: 2.5MG-10MG
  10. AZITHROMYCIN [Concomitant]
     Active Substance: AZITHROMYCIN
  11. BENZONATATE [Concomitant]
     Active Substance: BENZONATATE
  12. CLOTRIMAZOLE [Concomitant]
     Active Substance: CLOTRIMAZOLE
     Dosage: CRE 1%
  13. IPRATROPIUM [Concomitant]
     Active Substance: IPRATROPIUM
     Dosage: SOL 0.02%
  14. KETOCONAZOLE [Concomitant]
     Active Substance: KETOCONAZOLE
     Dosage: CRE 2%
  15. METOPROLOL [Concomitant]
     Active Substance: METOPROLOL
     Dosage: S TB 2
  16. MONTELUKAST [Concomitant]
     Active Substance: MONTELUKAST SODIUM
  17. MUPIROCIN [Concomitant]
     Active Substance: MUPIROCIN
     Dosage: OIN 2%
  18. OMEPRAZOLE [Concomitant]
     Active Substance: OMEPRAZOLE
     Dosage: CPD
  19. POTASSIUM [Concomitant]
     Active Substance: POTASSIUM
  20. RANITIDINE HYDROCHLORIDE [Concomitant]
     Active Substance: RANITIDINE HYDROCHLORIDE

REACTIONS (5)
  - Feeling abnormal [Not Recovered/Not Resolved]
  - Gastrointestinal pain [Not Recovered/Not Resolved]
  - Gastrointestinal disorder [Not Recovered/Not Resolved]
  - Drug ineffective [Unknown]
  - Malaise [Not Recovered/Not Resolved]
